FAERS Safety Report 25358450 (Version 1)
Quarter: 2025Q2

REPORT INFORMATION
  Report Type: Spontaneous
  Country: FR (occurrence: FR)
  Receive Date: 20250526
  Receipt Date: 20250526
  Transmission Date: 20250716
  Serious: Yes (Life-Threatening)
  Sender: ASTELLAS
  Company Number: FR-ASTELLAS-2025-AER-028418

PATIENT
  Age: 53 Year
  Sex: Male

DRUGS (2)
  1. REGADENOSON [Suspect]
     Active Substance: REGADENOSON
     Indication: Diagnostic procedure
     Route: 042
     Dates: start: 202312, end: 202312
  2. PROHANCE [Suspect]
     Active Substance: GADOTERIDOL
     Indication: Magnetic resonance imaging
     Route: 042
     Dates: start: 202312, end: 202312

REACTIONS (2)
  - Disturbance in attention [Recovered/Resolved]
  - Anaphylactic shock [Recovered/Resolved]

NARRATIVE: CASE EVENT DATE: 20231201
